FAERS Safety Report 7455418 (Version 4)
Quarter: 2018Q2

REPORT INFORMATION
  Report Type: Spontaneous
  Country: GB (occurrence: GB)
  Receive Date: 20100707
  Receipt Date: 20180613
  Transmission Date: 20180711
  Serious: Yes (Life-Threatening, Hospitalization, Other)
  Sender: FDA-Public Use
  Company Number: GB-RANBAXY-2010RR-34550

PATIENT
  Age: 52 Year
  Sex: Male

DRUGS (8)
  1. AMLODIPINE [Concomitant]
     Active Substance: AMLODIPINE BESYLATE
     Dosage: 10 MG, QD
     Route: 065
  2. FLOXACILLIN [Concomitant]
     Active Substance: FLUCLOXACILLIN
     Indication: LOCALISED INFECTION
  3. SIMVASTATIN. [Suspect]
     Active Substance: SIMVASTATIN
     Dosage: 40 MG, UNK
     Route: 048
  4. HUMALOG MIX75/25 [Concomitant]
     Active Substance: INSULIN LISPRO
     Indication: DIABETES MELLITUS
     Dosage: 18 DF, QD
     Route: 065
  5. FUCIDIN [Suspect]
     Active Substance: FUSIDIC ACID
     Indication: LOCALISED INFECTION
     Dosage: 500 MG, TID
     Route: 065
  6. FUCIDIN [Suspect]
     Active Substance: FUSIDIC ACID
     Indication: OSTEOMYELITIS
  7. FUCIDIN [Suspect]
     Active Substance: FUSIDIC ACID
     Indication: ARTHRITIS BACTERIAL
  8. FLOXACILLIN [Concomitant]
     Active Substance: FLUCLOXACILLIN
     Indication: OSTEOMYELITIS
     Dosage: 500 MG, QID
     Route: 065

REACTIONS (2)
  - Drug interaction [Recovering/Resolving]
  - Rhabdomyolysis [Recovering/Resolving]
